FAERS Safety Report 25013556 (Version 1)
Quarter: 2025Q1

REPORT INFORMATION
  Report Type: Spontaneous
  Country: US (occurrence: None)
  Receive Date: 20250226
  Receipt Date: 20250226
  Transmission Date: 20250409
  Serious: Yes (unspecified)
  Sender: FDA-CTU
  Company Number: None

PATIENT
  Age: 58 Year
  Sex: Female
  Weight: 69.75 kg

DRUGS (1)
  1. OSELTAMIVIR PHOSPHATE [Suspect]
     Active Substance: OSELTAMIVIR PHOSPHATE
     Indication: Influenza
     Dosage: FREQUENCY : TWICE A DAY;?
     Route: 048
     Dates: start: 20250220, end: 20250223

REACTIONS (2)
  - Rash pruritic [None]
  - Rash papular [None]

NARRATIVE: CASE EVENT DATE: 20250223
